FAERS Safety Report 6866168-2 (Version None)
Quarter: 2010Q2

REPORT INFORMATION
  Report Type: 
  Country: None (occurrence: None)
  Receive Date: 20100601
  Receipt Date: 20100322
  Transmission Date: 20101027
  Serious: No
  Sender: FDA-Public Use
  Company Number: 201004016

PATIENT
  Age: 72 Year
  Sex: Male
  Weight: 70.3075 kg

DRUGS (4)
  1. XIAFLEX [Suspect]
     Indication: DUPUYTREN'S CONTRACTURE
     Dosage: INTRALESIONAL
     Route: 026
     Dates: start: 20100316, end: 20100316
  2. TRIAMTERENE HYDROCHLOROTHIAZIDE (HYDROCHLOROTHIAZIDE, TRIAMTERENE) (HY [Concomitant]
  3. LEVOTHYROXINE (LEVOTHYROXINE) (LEVOTHYROXINE) [Concomitant]
  4. OMEPRAZOLE [Concomitant]

REACTIONS (3)
  - CONTUSION [None]
  - OEDEMA PERIPHERAL [None]
  - TENDERNESS [None]
